FAERS Safety Report 10440606 (Version 1)
Quarter: 2014Q3

REPORT INFORMATION
  Report Type: Spontaneous
  Country: US (occurrence: None)
  Receive Date: 20140908
  Receipt Date: 20140908
  Transmission Date: 20150326
  Serious: Yes (Hospitalization, Other)
  Sender: FDA-Public Use
  Company Number: None

PATIENT
  Age: 43 Year
  Sex: Male

DRUGS (3)
  1. KEPPRA [Concomitant]
     Active Substance: LEVETIRACETAM
  2. TRILEPTAL [Concomitant]
     Active Substance: OXCARBAZEPINE
  3. PHENYTOIN. [Suspect]
     Active Substance: PHENYTOIN
     Dates: start: 2010

REACTIONS (5)
  - Paraesthesia [None]
  - Aura [None]
  - Movement disorder [None]
  - Staring [None]
  - Product substitution issue [None]

NARRATIVE: CASE EVENT DATE: 20100726
